FAERS Safety Report 9172619 (Version 3)
Quarter: 2013Q3

REPORT INFORMATION
  Report Type: Report from Study
  Country: FR (occurrence: FR)
  Receive Date: 20130319
  Receipt Date: 20130926
  Transmission Date: 20140515
  Serious: Yes (Death, Hospitalization)
  Sender: FDA-Public Use
  Company Number: FR-AMGEN-FRACT2013006575

PATIENT
  Age: 79 Year
  Sex: Male

DRUGS (10)
  1. PANITUMUMAB [Suspect]
     Indication: OESOPHAGEAL ADENOCARCINOMA
     Dosage: 272 MG, UNK
     Route: 042
     Dates: start: 20121105, end: 20130114
  2. ELOXATIN [Concomitant]
     Indication: OESOPHAGEAL ADENOCARCINOMA
     Dosage: 150.5 MG, UNK
     Route: 042
     Dates: start: 20121105, end: 20130114
  3. LEUCOVORINE [Concomitant]
     Indication: OESOPHAGEAL ADENOCARCINOMA
     Dosage: 354 MG, UNK
     Route: 042
     Dates: start: 20121105, end: 20130114
  4. 5-FU [Concomitant]
     Indication: OESOPHAGEAL ADENOCARCINOMA
     Dosage: UNK
     Route: 042
     Dates: start: 20121105, end: 20130116
  5. LOPERAMIDE [Concomitant]
     Dosage: UNK UNK, AS NECESSARY
     Route: 048
  6. SMECTA [Concomitant]
     Dosage: UNK UNK, AS NECESSARY
     Route: 048
  7. DIFFU K [Concomitant]
     Dosage: UNK UNK, TID
     Route: 048
  8. PHOSPHONEUROS [Concomitant]
     Dosage: UNK UNK, QD
     Route: 048
  9. MAG 2 [Concomitant]
     Dosage: UNK UNK, BID
     Route: 048
  10. LASILIX [Concomitant]
     Dosage: UNK

REACTIONS (2)
  - Peritonitis [Fatal]
  - Renal failure acute [Not Recovered/Not Resolved]
